FAERS Safety Report 5477030-4 (Version None)
Quarter: 2007Q4

REPORT INFORMATION
  Report Type: 
  Country: None (occurrence: None)
  Receive Date: 20071002
  Receipt Date: 20071002
  Transmission Date: 20080405
  Serious: Yes (Life-Threatening, Hospitalization)
  Sender: FDA-Public Use
  Company Number: None

PATIENT
  Age: 50 Year
  Sex: Female

DRUGS (2)
  1. ABILIFY [Suspect]
     Indication: SCHIZOPHRENIA, PARANOID TYPE
     Dosage: 30 MG 1/DAY PO
     Route: 048
     Dates: start: 20061010, end: 20070702
  2. LEXAPRO [Suspect]
     Indication: DEPRESSIVE SYMPTOM
     Dosage: 10 MG 1/DAY PO
     Route: 048
     Dates: start: 20070628, end: 20070702

REACTIONS (10)
  - AKATHISIA [None]
  - CONFUSIONAL STATE [None]
  - DEPRESSION [None]
  - DRY MOUTH [None]
  - GAIT DISTURBANCE [None]
  - IMPAIRED SELF-CARE [None]
  - MUSCULOSKELETAL STIFFNESS [None]
  - NO THERAPEUTIC RESPONSE [None]
  - PARESIS [None]
  - RHABDOMYOLYSIS [None]
